FAERS Safety Report 6165470-X (Version None)
Quarter: 2009Q2

REPORT INFORMATION
  Report Type: 
  Country: None (occurrence: None)
  Receive Date: 20090420
  Receipt Date: 20090420
  Transmission Date: 20091009
  Serious: Yes (Hospitalization)
  Sender: FDA-Public Use
  Company Number: None

PATIENT
  Age: 55 Year
  Sex: Female
  Weight: 51 kg

DRUGS (11)
  1. PURSENNID (NCH) SENNA GLYCOSIDES (CA SALTS OF PURIFIED SENNA EXTRACT)) [Suspect]
     Dosage: ORAL
     Route: 048
  2. BLONANSERIN (BLONANSERIN) [Concomitant]
  3. DEPAKENE [Concomitant]
  4. HIRNAMIN (LEVOMEPROMAZINE) [Concomitant]
  5. AKINETON /AUS/ (BIPERIDEN HYDROCHLORIDE) [Concomitant]
  6. MAGMITT KENEI (MAGNESIUM OXIDE) [Concomitant]
  7. VEGETAMIN B (CHLORPROMAZINE HYDROCHLORIDE, PHENOBARBITAL, PROMETHAZINE [Concomitant]
  8. NITRAZEPAM [Concomitant]
  9. RHYTHMY (RILMAZAFONE) [Concomitant]
  10. ADJUST-A (SENNA ALEXANDRINA LEAF) [Concomitant]
  11. LAXOBERON (SODIUM PICOSULFATE) [Concomitant]

REACTIONS (4)
  - BLOOD INSULIN DECREASED [None]
  - HYPOGLYCAEMIA [None]
  - HYPOTHALAMO-PITUITARY DISORDER [None]
  - SCHIZOPHRENIA [None]
